FAERS Safety Report 11866756 (Version 1)
Quarter: 2015Q4

REPORT INFORMATION
  Report Type: Spontaneous
  Country: PL (occurrence: PL)
  Receive Date: 20151224
  Receipt Date: 20151224
  Transmission Date: 20160305
  Serious: Yes (Death, Hospitalization, Other)
  Sender: FDA-Public Use
  Company Number: PL-ALEMBIC PHARMACUETICALS LIMITED-2015SCAL000200

PATIENT
  Age: 32 Year
  Sex: Female

DRUGS (5)
  1. VALGANCICLOVIR [Concomitant]
     Active Substance: VALGANCICLOVIR
     Indication: CYTOMEGALOVIRUS INFECTION
     Dosage: UNK
  2. LEFLUNOMIDE. [Suspect]
     Active Substance: LEFLUNOMIDE
     Indication: CYTOMEGALOVIRUS INFECTION
     Dosage: UNK
  3. IMMUNOGLOBULINS [Suspect]
     Active Substance: HUMAN IMMUNOGLOBULIN G
     Indication: CYTOMEGALOVIRUS INFECTION
     Dosage: UNK
  4. GANCICLOVIR. [Suspect]
     Active Substance: GANCICLOVIR
     Indication: CYTOMEGALOVIRUS INFECTION
     Dosage: UNK
  5. EVEROLIMUS [Concomitant]
     Active Substance: EVEROLIMUS
     Indication: CYTOMEGALOVIRUS INFECTION
     Dosage: UNK

REACTIONS (11)
  - Multi-organ failure [Fatal]
  - Pancytopenia [Unknown]
  - Diarrhoea [Unknown]
  - Pyrexia [Unknown]
  - Seizure [Unknown]
  - Acute hepatitis C [Unknown]
  - Diabetes mellitus [Unknown]
  - Cholangitis [Unknown]
  - Cough [Unknown]
  - Drug-induced liver injury [Unknown]
  - Product use issue [Unknown]
